FAERS Safety Report 4592351-5 (Version None)
Quarter: 2005Q1

REPORT INFORMATION
  Report Type: 
  Country: None (occurrence: None)
  Receive Date: 20050228
  Receipt Date: 20041215
  Transmission Date: 20050727
  Serious: Yes (Death, Hospitalization, Other)
  Sender: FDA-Public Use
  Company Number: US-BRISTOL-MYERS SQUIBB COMPANY-12797148

PATIENT
  Age: 49 Year
  Sex: Male
  Weight: 59 kg

DRUGS (7)
  1. ABILIFY [Suspect]
     Indication: SCHIZOPHRENIA
     Dosage: INTERRUPTED ON 06-NOV-2004 WHEN THE PATIENT WAS INTUBATED.  RESTARTED ON 11-NOV-04 AFTER EXTUBATION.
     Route: 048
     Dates: start: 20041103
  2. HALDOL [Suspect]
     Dates: start: 20041107
  3. CLOZARIL [Suspect]
     Dosage: INTERRUPTED ON 06-NOV-2004 WHEN THE PATIENT WAS INTUBATED.  RESTARTED AFTER EXTUBATION.
     Dates: start: 20041103
  4. PAVULON [Concomitant]
     Dates: start: 20041107, end: 20041107
  5. DIPRIVAN [Concomitant]
     Dates: start: 20041107, end: 20041107
  6. GEODON [Concomitant]
     Dates: start: 20041114, end: 20041114
  7. DANTRIUM [Concomitant]
     Dates: start: 20041120, end: 20041120

REACTIONS (3)
  - NEUROLEPTIC MALIGNANT SYNDROME [None]
  - RENAL FAILURE [None]
  - RESPIRATORY DISTRESS [None]
